FAERS Safety Report 4976858-4 (Version None)
Quarter: 2006Q2

REPORT INFORMATION
  Report Type: 
  Country: None (occurrence: None)
  Receive Date: 20060413
  Receipt Date: 20060403
  Transmission Date: 20061013
  Serious: Yes (Other)
  Sender: FDA-Public Use
  Company Number: 2006018647

PATIENT
  Sex: Female

DRUGS (4)
  1. LIPITOR [Suspect]
     Indication: BLOOD CHOLESTEROL INCREASED
     Dosage: (40 MG, DAILY),
  2. CAPTOPRIL [Concomitant]
  3. FLUOXETINE [Concomitant]
  4. ATENOLOL [Concomitant]

REACTIONS (5)
  - ALOPECIA [None]
  - BREAST CANCER FEMALE [None]
  - LYMPHADENECTOMY [None]
  - TOOTH LOSS [None]
  - WEIGHT DECREASED [None]
